FAERS Safety Report 10525864 (Version 2)
Quarter: 2014Q4

REPORT INFORMATION
  Report Type: Report from Study
  Country: DE (occurrence: DE)
  Receive Date: 20141017
  Receipt Date: 20141017
  Transmission Date: 20150528
  Serious: Yes (Other)
  Sender: FDA-Public Use
  Company Number: PHHY2012DE024386

PATIENT
  Sex: Female

DRUGS (1)
  1. EXTAVIA [Suspect]
     Active Substance: INTERFERON BETA-1B
     Indication: MULTIPLE SCLEROSIS
     Dosage: 1 ML, QOD
     Route: 058
     Dates: start: 20111118

REACTIONS (4)
  - Urinary tract infection [Recovered/Resolved]
  - Influenza like illness [Unknown]
  - Gingivitis [Unknown]
  - Meningioma [Unknown]

NARRATIVE: CASE EVENT DATE: 2012
